FAERS Safety Report 17891447 (Version 1)
Quarter: 2020Q2

REPORT INFORMATION
  Report Type: Spontaneous
  Country: FR (occurrence: FR)
  Receive Date: 20200612
  Receipt Date: 20200612
  Transmission Date: 20200714
  Serious: Yes (Hospitalization, Other)
  Sender: FDA-Public Use
  Company Number: FR-AMGEN-FRASP2020090112

PATIENT
  Age: 65 Year
  Sex: Male

DRUGS (5)
  1. VITAMINE B12 [Concomitant]
     Active Substance: CYANOCOBALAMIN
     Route: 048
  2. ALIMTA [Suspect]
     Active Substance: PEMETREXED DISODIUM
     Indication: BRONCHIAL CARCINOMA
     Dosage: 490 MILLIGRAM, CYCLICAL
     Route: 041
     Dates: start: 20191202, end: 20200410
  3. SPECIAFOLDINE [Concomitant]
     Active Substance: FOLIC ACID
     Route: 048
  4. XGEVA [Suspect]
     Active Substance: DENOSUMAB
     Indication: METASTASES TO BONE
     Dosage: 1 DOSAGE FORM, 28 DAYS
     Route: 041
     Dates: start: 20200117, end: 20200415
  5. KEYTRUDA [Suspect]
     Active Substance: PEMBROLIZUMAB
     Indication: BRONCHIAL CARCINOMA
     Dosage: 200 MILLIGRAM, CYCLICAL
     Route: 041
     Dates: start: 20200228, end: 20200410

REACTIONS (3)
  - Erythema [Recovered/Resolved]
  - Acute kidney injury [Not Recovered/Not Resolved]
  - Pancytopenia [Recovering/Resolving]

NARRATIVE: CASE EVENT DATE: 20200415
